FAERS Safety Report 4634402-5 (Version None)
Quarter: 2005Q2

REPORT INFORMATION
  Report Type: 
  Country: None (occurrence: None)
  Receive Date: 20050412
  Receipt Date: 20050330
  Transmission Date: 20051028
  Serious: Yes (Other)
  Sender: FDA-Public Use
  Company Number: 2005040889

PATIENT
  Age: 55 Year
  Sex: Female

DRUGS (11)
  1. CELEBREX [Suspect]
     Indication: ARTHRITIS
     Dosage: 200 MG (200 MG, 1 IN 1 D), ORAL
     Route: 048
  2. NEURONTIN [Suspect]
     Indication: CONVULSION
     Dosage: 900 MG (300 MG, 3 IN 1 D), ORAL
     Route: 048
  3. NEURONTIN [Suspect]
     Indication: MUSCLE SPASMS
     Dosage: 900 MG (300 MG, 3 IN 1 D), ORAL
     Route: 048
  4. GABAPENTIN [Suspect]
     Indication: CONVULSION
     Dosage: 300 MG, ORAL
     Route: 048
  5. GABAPENTIN [Suspect]
     Indication: MUSCLE SPASMS
     Dosage: 300 MG, ORAL
     Route: 048
  6. ESOMEPRAZOLE (ESOMEPRAZOLE) [Concomitant]
  7. AMITRIPTYLINE HYDROCHLORIDE [Concomitant]
  8. OXYCODONE HYDROCHLORIDE AND ACETAMINOPHEN [Concomitant]
  9. FUROSEMIDE [Concomitant]
  10. CLONAZEPAM [Concomitant]
  11. DICLOFENAC SODIUM [Concomitant]

REACTIONS (9)
  - BACK DISORDER [None]
  - DYSSTASIA [None]
  - INCONTINENCE [None]
  - MEDICATION ERROR [None]
  - MUSCLE SPASMS [None]
  - OEDEMA PERIPHERAL [None]
  - PHARMACEUTICAL PRODUCT COMPLAINT [None]
  - TREATMENT NONCOMPLIANCE [None]
  - TREMOR [None]
